FAERS Safety Report 4531578-5 (Version None)
Quarter: 2004Q4

REPORT INFORMATION
  Report Type: 
  Country: None (occurrence: None)
  Receive Date: 20041216
  Receipt Date: 20041201
  Transmission Date: 20050328
  Serious: Yes (Death, Hospitalization)
  Sender: FDA-Public Use
  Company Number: 209254

PATIENT
  Age: 50 Year
  Sex: Female
  Weight: 52.2 kg

DRUGS (2)
  1. AVASTIN [Suspect]
     Indication: COLORECTAL CANCER METASTATIC
     Dosage: 5 MG/KG, Q2W; INTRAVENOUS
     Route: 042
     Dates: start: 20040823
  2. COUMADIN [Concomitant]

REACTIONS (14)
  - BLOOD CHOLESTEROL INCREASED [None]
  - BLOOD FIBRINOGEN INCREASED [None]
  - BRADYCARDIA [None]
  - BRAIN COMPRESSION [None]
  - BRAIN OEDEMA [None]
  - CAROTID ARTERY OCCLUSION [None]
  - CEREBRAL HAEMORRHAGE [None]
  - CEREBRAL INFARCTION [None]
  - CREATINE PHOSPHOKINASE DECREASED [None]
  - DEPRESSED LEVEL OF CONSCIOUSNESS [None]
  - LOW DENSITY LIPOPROTEIN INCREASED [None]
  - METASTASES TO CENTRAL NERVOUS SYSTEM [None]
  - PROTHROMBIN TIME PROLONGED [None]
  - WHITE BLOOD CELL COUNT INCREASED [None]
